FAERS Safety Report 18049126 (Version 4)
Quarter: 2020Q4

REPORT INFORMATION
  Report Type: Spontaneous
  Country: US (occurrence: US)
  Receive Date: 20200721
  Receipt Date: 20201124
  Transmission Date: 20210113
  Serious: Yes (Other)
  Sender: FDA-Public Use
  Company Number: US-PFIZER INC-2020276240

PATIENT
  Age: 56 Year
  Sex: Female
  Weight: 74.84 kg

DRUGS (1)
  1. SUTENT [Suspect]
     Active Substance: SUNITINIB MALATE
     Indication: RENAL CANCER STAGE III
     Dosage: 50 MG, CYCLIC (ONCE DAILY FOR 28 DAYS, OFF FOR 14 DAYS)
     Route: 048

REACTIONS (12)
  - Haemoglobin decreased [Unknown]
  - Stomatitis [Unknown]
  - White blood cell count decreased [Unknown]
  - Paraesthesia oral [Unknown]
  - Vomiting [Unknown]
  - Gait disturbance [Unknown]
  - Nausea [Unknown]
  - Platelet count decreased [Unknown]
  - Pain in extremity [Unknown]
  - Red blood cell count decreased [Not Recovered/Not Resolved]
  - Depressed mood [Unknown]
  - Oral discomfort [Unknown]
